FAERS Safety Report 5919186-2 (Version None)
Quarter: 2008Q4

REPORT INFORMATION
  Report Type: 
  Country: None (occurrence: None)
  Receive Date: 20081010
  Receipt Date: 20080925
  Transmission Date: 20090506
  Serious: Yes (Other)
  Sender: FDA-Public Use
  Company Number: 2008S1017503

PATIENT
  Sex: Female

DRUGS (1)
  1. DOXEPIN HYDROCHLORIDE [Suspect]
     Indication: DEPRESSION
     Dosage: 10 MG

REACTIONS (4)
  - DYSURIA [None]
  - MUSCLE TIGHTNESS [None]
  - PELVIC PAIN [None]
  - SKIN REACTION [None]
